FAERS Safety Report 7865781-3 (Version None)
Quarter: 2011Q4

REPORT INFORMATION
  Report Type: 
  Country: None (occurrence: None)
  Receive Date: 20111028
  Receipt Date: 20110222
  Transmission Date: 20120403
  Serious: No
  Sender: FDA-Public Use
  Company Number: US-GLAXOSMITHKLINE-A0914885A

PATIENT
  Age: 66 Year
  Sex: Female
  Weight: 64.1 kg

DRUGS (2)
  1. NO CONCURRENT MEDICATION [Concomitant]
  2. ADVAIR DISKUS 100/50 [Suspect]
     Indication: COUGH
     Dosage: 1PUFF TWICE PER DAY
     Route: 055
     Dates: start: 20110131, end: 20110201

REACTIONS (5)
  - PRODUCT QUALITY ISSUE [None]
  - ILL-DEFINED DISORDER [None]
  - RETCHING [None]
  - COUGH [None]
  - PRODUCTIVE COUGH [None]
